FAERS Safety Report 7342130-0 (Version None)
Quarter: 2011Q1

REPORT INFORMATION
  Report Type: 
  Country: None (occurrence: None)
  Receive Date: 20110309
  Receipt Date: 20110228
  Transmission Date: 20110831
  Serious: Yes (Disabling)
  Sender: FDA-Public Use
  Company Number: US-MERCK-96070701

PATIENT
  Age: 62 Year
  Sex: Female

DRUGS (6)
  1. FOSAMAX [Suspect]
     Route: 048
     Dates: start: 19960702
  2. VITAMINS [Concomitant]
     Route: 065
  3. PREMARIN [Concomitant]
     Route: 065
  4. CALCIUM [Concomitant]
     Route: 065
  5. VITAMIN E [Concomitant]
     Route: 065
  6. FOSAMAX [Suspect]
     Route: 048
     Dates: start: 20000101

REACTIONS (7)
  - JAW DISORDER [None]
  - CHOKING [None]
  - DYSPEPSIA [None]
  - GAIT DISTURBANCE [None]
  - TOOTH DISORDER [None]
  - DYSPHAGIA [None]
  - LIMB DISCOMFORT [None]
